FAERS Safety Report 18250425 (Version 1)
Quarter: 2020Q3

REPORT INFORMATION
  Report Type: Report from Study
  Country: US (occurrence: US)
  Receive Date: 20200909
  Receipt Date: 20200909
  Transmission Date: 20201103
  Serious: Yes (Hospitalization)
  Sender: FDA-Public Use
  Company Number: US-JNJFOC-A-NJ2019-191231

PATIENT
  Age: 57 Year
  Sex: Female
  Weight: 68.03 kg

DRUGS (7)
  1. UPTRAVI [Suspect]
     Active Substance: SELEXIPAG
     Dosage: 1000 MCG, BID
     Route: 048
  2. LETAIRIS [Concomitant]
     Active Substance: AMBRISENTAN
  3. UPTRAVI [Suspect]
     Active Substance: SELEXIPAG
     Indication: PULMONARY ARTERIAL HYPERTENSION
     Dosage: 800 MCG, BID
     Route: 048
  4. REMODULIN [Suspect]
     Active Substance: TREPROSTINIL
     Indication: PRODUCT USED FOR UNKNOWN INDICATION
     Dosage: UNK
     Route: 065
  5. REMODULIN [Suspect]
     Active Substance: TREPROSTINIL
     Dosage: 41 NG/KG, PER MIN
     Route: 065
  6. AMBRISENTAN [Concomitant]
     Active Substance: AMBRISENTAN
  7. ADEMPAS [Concomitant]
     Active Substance: RIOCIGUAT

REACTIONS (12)
  - Hospitalisation [Unknown]
  - Weight increased [Unknown]
  - Pulmonary hypertension [Unknown]
  - Hypotension [Unknown]
  - Flatulence [Unknown]
  - Catheter site pain [Unknown]
  - Cardiac failure [Unknown]
  - Disease progression [Unknown]
  - Red blood cell count decreased [Unknown]
  - Diarrhoea [Unknown]
  - Hospitalisation [Unknown]
  - Presyncope [Unknown]

NARRATIVE: CASE EVENT DATE: 20200628
